FAERS Safety Report 9324659 (Version 1)
Quarter: 2013Q2

REPORT INFORMATION
  Report Type: Spontaneous
  Country: US (occurrence: US)
  Receive Date: 20130603
  Receipt Date: 20130603
  Transmission Date: 20140414
  Serious: Yes (Other)
  Sender: FDA-Public Use
  Company Number: US-GLAXOSMITHKLINE-A1025124A

PATIENT
  Age: 58 Year
  Sex: Female

DRUGS (4)
  1. TYKERB [Suspect]
     Indication: BREAST CANCER
     Dosage: 250MG PER DAY
     Route: 048
     Dates: start: 20120406
  2. AROMASIN [Concomitant]
  3. MULTIVITAMIN [Concomitant]
  4. FLAXSEED OIL [Concomitant]

REACTIONS (1)
  - Breast cancer [Unknown]
